FAERS Safety Report 10554149 (Version 2)
Quarter: 2014Q4

REPORT INFORMATION
  Report Type: Spontaneous
  Country: US (occurrence: US)
  Receive Date: 20141030
  Receipt Date: 20141030
  Transmission Date: 20150529
  Serious: Yes (Death, Hospitalization, Other)
  Sender: FDA-Public Use
  Company Number: US-GLAXOSMITHKLINE-A0703680A

PATIENT
  Sex: Female
  Weight: 86 kg

DRUGS (1)
  1. AVANDIA [Suspect]
     Active Substance: ROSIGLITAZONE MALEATE
     Indication: TYPE 2 DIABETES MELLITUS
     Route: 048
     Dates: start: 200308, end: 200701

REACTIONS (5)
  - Arteriosclerosis [Unknown]
  - Cardiac failure congestive [Unknown]
  - Myocardial infarction [Fatal]
  - Cardiac arrest [Unknown]
  - Hypertension [Unknown]
